FAERS Safety Report 13197253 (Version 1)
Quarter: 2017Q1

REPORT INFORMATION
  Report Type: Report from Study
  Country: DE (occurrence: DE)
  Receive Date: 20170208
  Receipt Date: 20170208
  Transmission Date: 20170428
  Serious: Yes (Other)
  Sender: FDA-Public Use
  Company Number: DE-PFIZER INC-2017052496

PATIENT
  Sex: Male

DRUGS (2)
  1. VALPROATE [Suspect]
     Active Substance: VALPROIC ACID
     Indication: EPILEPSY
     Dosage: 25.8 MG/KG, DAILY
     Route: 064
  2. PHENYTOIN. [Suspect]
     Active Substance: PHENYTOIN
     Indication: EPILEPSY
     Dosage: 5.0 MG/KG, DAILY
     Route: 064

REACTIONS (5)
  - Limb hypoplasia congenital [Unknown]
  - Ear disorder [Unknown]
  - Nail disorder [Unknown]
  - Maternal exposure during pregnancy [Unknown]
  - Apgar score low [Unknown]
